FAERS Safety Report 7713172-8 (Version None)
Quarter: 2011Q3

REPORT INFORMATION
  Report Type: 
  Country: None (occurrence: None)
  Receive Date: 20110826
  Receipt Date: 20110818
  Transmission Date: 20111222
  Serious: Yes (Other)
  Sender: FDA-Public Use
  Company Number: PHHY2010US69461

PATIENT
  Age: 80 Year
  Sex: Female

DRUGS (9)
  1. ZOCOR [Concomitant]
  2. RECLAST [Suspect]
     Dosage: UNK
     Route: 042
     Dates: start: 20101101
  3. RECLAST [Suspect]
     Dosage: UNK
     Route: 042
  4. NEXIUM [Concomitant]
  5. RECLAST [Suspect]
     Indication: OSTEOPOROSIS
     Dosage: UNK
     Route: 042
  6. VITAMIN D [Concomitant]
  7. ACTONEL [Suspect]
  8. FOSAMAX [Suspect]
  9. CALCIUM CARBONATE [Suspect]

REACTIONS (3)
  - HOT FLUSH [None]
  - EROSIVE OESOPHAGITIS [None]
  - DYSPEPSIA [None]
